FAERS Safety Report 24084747 (Version 1)
Quarter: 2024Q3

REPORT INFORMATION
  Report Type: Spontaneous
  Country: CN (occurrence: CN)
  Receive Date: 20240712
  Receipt Date: 20240712
  Transmission Date: 20241016
  Serious: Yes (Other)
  Sender: PFIZER
  Company Number: CN-PFIZER INC-PV202400090620

PATIENT
  Age: 75 Year
  Sex: Male

DRUGS (2)
  1. AXITINIB [Suspect]
     Active Substance: AXITINIB
     Indication: Renal cancer
     Dosage: 5 MG, 2X/DAY (Q12H)
     Route: 048
     Dates: start: 20240527, end: 202407
  2. AXITINIB [Suspect]
     Active Substance: AXITINIB
     Dosage: 2.5 MG, 2X/DAY (Q12H)
     Route: 048
     Dates: start: 202407, end: 20240708

REACTIONS (2)
  - Chest pain [Not Recovered/Not Resolved]
  - N-terminal prohormone brain natriuretic peptide increased [Not Recovered/Not Resolved]

NARRATIVE: CASE EVENT DATE: 20240702
